FAERS Safety Report 24530227 (Version 5)
Quarter: 2025Q2

REPORT INFORMATION
  Report Type: Report from Study
  Country: US (occurrence: US)
  Receive Date: 20241021
  Receipt Date: 20250523
  Transmission Date: 20250717
  Serious: Yes (Hospitalization, Other)
  Sender: MERCK SHARP & DOHME LLC
  Company Number: US-009507513-2409USA008328

PATIENT
  Sex: Female

DRUGS (14)
  1. WINREVAIR [Suspect]
     Active Substance: SOTATERCEPT-CSRK
     Indication: Pulmonary arterial hypertension
     Dosage: DOSE DESCRIPTION : 1 MILLILITER, Q3W; STRENGTH: 60 MG?DAILY DOSE : 0.047 MILLILITER?CONCENTRATION...
     Route: 058
     Dates: start: 2024
  2. WINREVAIR [Suspect]
     Active Substance: SOTATERCEPT-CSRK
  3. WINREVAIR [Suspect]
     Active Substance: SOTATERCEPT-CSRK
  4. WINREVAIR [Suspect]
     Active Substance: SOTATERCEPT-CSRK
  5. SOTATERCEPT [Suspect]
     Active Substance: SOTATERCEPT
     Indication: Pulmonary arterial hypertension
     Dosage: DOSE DESCRIPTION : 0.4 ML FOR 1 DOSE AND THEN INCREASED TO 1 ML FOR TARGET DOSE, EVERY 3 WEEKS. S...
     Route: 058
     Dates: start: 202408
  6. SOTATERCEPT [Suspect]
     Active Substance: SOTATERCEPT
  7. SOTATERCEPT [Suspect]
     Active Substance: SOTATERCEPT
  8. SOTATERCEPT [Suspect]
     Active Substance: SOTATERCEPT
  9. ORENITRAM [Suspect]
     Active Substance: TREPROSTINIL
     Indication: Pulmonary arterial hypertension
     Dosage: DOSE DESCRIPTION : 7.375 MILLIGRAM (2 TABLETS OF 1 MG, 1 TABLET OF 5 MG, 1 TABLET OF 0.25 MG AND ...
     Route: 048
     Dates: start: 202409
  10. ORENITRAM [Suspect]
     Active Substance: TREPROSTINIL
     Indication: Pulmonary arterial hypertension
     Route: 048
     Dates: start: 202409
  11. ORENITRAM [Suspect]
     Active Substance: TREPROSTINIL
     Indication: Pulmonary arterial hypertension
     Route: 048
     Dates: start: 202409
  12. ORENITRAM [Suspect]
     Active Substance: TREPROSTINIL
     Indication: Pulmonary arterial hypertension
     Route: 048
     Dates: start: 202409
  13. ORENITRAM [Suspect]
     Active Substance: TREPROSTINIL
     Indication: Pulmonary arterial hypertension
     Route: 048
     Dates: start: 202409
  14. TRAMADOL [Concomitant]
     Active Substance: TRAMADOL

REACTIONS (12)
  - Renal injury [Recovering/Resolving]
  - Hallucination [Recovering/Resolving]
  - Disorganised speech [Recovering/Resolving]
  - Abnormal behaviour [Recovering/Resolving]
  - Epistaxis [Recovering/Resolving]
  - Migraine [Recovering/Resolving]
  - Epistaxis [Recovered/Resolved]
  - Blood pressure decreased [Recovering/Resolving]
  - Weight decreased [Unknown]
  - Injection site pain [Recovering/Resolving]
  - Dyspnoea [Unknown]
  - Inappropriate schedule of product administration [Unknown]

NARRATIVE: CASE EVENT DATE: 20240101
